FAERS Safety Report 4681323-8 (Version None)
Quarter: 2005Q2

REPORT INFORMATION
  Report Type: 
  Country: None (occurrence: None)
  Receive Date: 20050601
  Receipt Date: 20050518
  Transmission Date: 20051028
  Serious: Yes (Death)
  Sender: FDA-Public Use
  Company Number: US-2004-030848

PATIENT
  Age: 78 Year
  Sex: Female
  Weight: 61.2 kg

DRUGS (18)
  1. CLIMARA [Suspect]
     Indication: HORMONE REPLACEMENT THERAPY
     Dosage: 0.05 MG/D, CONT, TRANSDERMAL
     Route: 062
     Dates: start: 19970601, end: 20011001
  2. MEDROXYPROGESTERONE ACETATE [Suspect]
     Indication: HORMONE REPLACEMENT THERAPY
     Dates: start: 19960101, end: 19970101
  3. VAGIFEM [Suspect]
     Indication: HORMONE REPLACEMENT THERAPY
     Dates: start: 20020101, end: 20020101
  4. FEMHRT [Suspect]
     Indication: HORMONE REPLACEMENT THERAPY
     Dates: start: 20020101, end: 20020101
  5. MEDROXYPROGESTERONE ACETATE [Suspect]
     Indication: HORMONE REPLACEMENT THERAPY
     Dates: start: 19970101, end: 20020101
  6. PROVERA [Suspect]
     Dosage: SEE IMAGE
     Dates: start: 19930101, end: 19960101
  7. PROVERA [Suspect]
     Dosage: SEE IMAGE
     Dates: start: 19970601
  8. PREMARIN [Suspect]
     Indication: HORMONE REPLACEMENT THERAPY
     Dates: start: 19930101, end: 19960101
  9. FOSAMAX [Concomitant]
  10. ASPIRIN [Concomitant]
  11. MULTIVITAMINS (PANTHENOL, RETINOL) [Concomitant]
  12. CLARITIN [Concomitant]
  13. ADVICOR (LOVASTATIN, NICOTINIC ACID) [Concomitant]
  14. NIASPAN [Concomitant]
  15. ZOCOR [Concomitant]
  16. BACTROBAN NASAL (MUPIROCIN CALCIUM) [Concomitant]
  17. CELEBREX [Concomitant]
  18. OXYCODONE/APAP (OXYCODONE) [Concomitant]

REACTIONS (4)
  - ENDOMETRIAL CANCER [None]
  - FALLOPIAN TUBE CANCER [None]
  - OVARIAN CANCER [None]
  - THYROID NEOPLASM [None]
